FAERS Safety Report 12548034 (Version 1)
Quarter: 2016Q3

REPORT INFORMATION
  Report Type: Spontaneous
  Country: US (occurrence: US)
  Receive Date: 20160712
  Receipt Date: 20160712
  Transmission Date: 20161109
  Serious: No
  Sender: FDA-Public Use
  Company Number: US-BAYER-2016-128113

PATIENT
  Age: 80 Year
  Sex: Male
  Weight: 79.37 kg

DRUGS (5)
  1. LYSINE [Concomitant]
     Active Substance: LYSINE
  2. ALOPHEN [PHENOLPHTHALEIN] [Suspect]
     Active Substance: PHENOLPHTHALEIN
  3. MIRALAX [Suspect]
     Active Substance: POLYETHYLENE GLYCOL 3350
     Indication: COLONOSCOPY
     Dosage: UNK
     Route: 048
     Dates: start: 20160629
  4. LISINOPRIL. [Concomitant]
     Active Substance: LISINOPRIL
     Dosage: 2.5 MG, UNK
  5. DIPHENHYDRAMINE. [Concomitant]
     Active Substance: DIPHENHYDRAMINE
     Dosage: 158 MG, UNK

REACTIONS (5)
  - Circumstance or information capable of leading to medication error [None]
  - Product use issue [None]
  - Product use issue [None]
  - Off label use [None]
  - Expired product administered [None]

NARRATIVE: CASE EVENT DATE: 201506
